FAERS Safety Report 18667082 (Version 2)
Quarter: 2021Q2

REPORT INFORMATION
  Report Type: Spontaneous
  Country: US (occurrence: US)
  Receive Date: 20201228
  Receipt Date: 20210401
  Transmission Date: 20210717
  Serious: No
  Sender: FDA-Public Use
  Company Number: US-GLENMARK PHARMACEUTICALS-2020GMK050519

PATIENT

DRUGS (1)
  1. FLUOCINOLONE ACETONIDE OIL, 0.01% (EAR DROPS) [Suspect]
     Active Substance: FLUOCINOLONE ACETONIDE
     Indication: PRURITUS
     Dosage: UNK
     Route: 065

REACTIONS (2)
  - Product delivery mechanism issue [Unknown]
  - Wrong technique in product usage process [Unknown]
